FAERS Safety Report 26201983 (Version 1)
Quarter: 2025Q4

REPORT INFORMATION
  Report Type: Report from Study
  Country: JP (occurrence: JP)
  Receive Date: 20251226
  Receipt Date: 20251226
  Transmission Date: 20260117
  Serious: Yes (Death, Hospitalization, Other)
  Sender: ROCHE
  Company Number: JP-CHUGAI-2022030539

PATIENT
  Age: 63 Year
  Sex: Female
  Weight: 57.00 kg

DRUGS (2)
  1. TECENTRIQ [Suspect]
     Active Substance: ATEZOLIZUMAB
     Indication: Triple negative breast cancer
     Route: 041
     Dates: start: 20220616
  2. PACLITAXEL [Suspect]
     Active Substance: PACLITAXEL
     Indication: Triple negative breast cancer
     Route: 041
     Dates: start: 20220616, end: 20221110

REACTIONS (4)
  - Neuropathy peripheral [Recovered/Resolved]
  - Stomatitis [Recovered/Resolved]
  - Pericardial effusion [Recovered/Resolved]
  - Disease progression [Fatal]

NARRATIVE: CASE EVENT DATE: 20220721
